FAERS Safety Report 24622693 (Version 4)
Quarter: 2024Q4

REPORT INFORMATION
  Report Type: Spontaneous
  Country: US (occurrence: US)
  Receive Date: 20241115
  Receipt Date: 20241204
  Transmission Date: 20250114
  Serious: No
  Sender: ROCHE
  Company Number: US-ROCHE-10000132206

PATIENT
  Age: 77 Year
  Sex: Female

DRUGS (2)
  1. VABYSMO [Suspect]
     Active Substance: FARICIMAB-SVOA
     Indication: Macular degeneration
     Dosage: STRENGTH: 0.05 ML OF 120 MG/ML
     Route: 050
     Dates: end: 20240911
  2. VALIUM [Concomitant]
     Active Substance: DIAZEPAM

REACTIONS (3)
  - Hypertension [Recovered/Resolved]
  - Heart rate increased [Recovered/Resolved]
  - Off label use [Unknown]

NARRATIVE: CASE EVENT DATE: 20240911
